FAERS Safety Report 19168780 (Version 9)
Quarter: 2021Q4

REPORT INFORMATION
  Report Type: Report from Study
  Country: CN (occurrence: None)
  Receive Date: 20210422
  Receipt Date: 20211126
  Transmission Date: 20220303
  Serious: Yes (Hospitalization)
  Sender: FDA-Public Use
  Company Number: CN-ROCHE-2765586

PATIENT
  Age: 54 Year
  Sex: Male
  Weight: 77 kg

DRUGS (36)
  1. ATEZOLIZUMAB [Suspect]
     Active Substance: ATEZOLIZUMAB
     Indication: Hepatocellular carcinoma
     Dosage: ADMINISTERED BY IV, 1200 MG ON DAY 1 OF EACH 21 DAY CYCLE?DATE OF MOST RECENT DOSE OF ATEZOLIZUMAB (
     Route: 041
     Dates: start: 20181017
  2. BEVACIZUMAB [Suspect]
     Active Substance: BEVACIZUMAB
     Indication: Hepatocellular carcinoma
     Dosage: IV, 15 MG/KG ON DAY 1 OF EACH 21 DAY CYCLE?DATE OF MOST RECENT DOSE OF BEVACIZUMAB (1162.5 MG) PRIOR
     Route: 042
     Dates: start: 20181017
  3. ENTECAVIR [Concomitant]
     Active Substance: ENTECAVIR
     Indication: Hepatitis B
     Dates: start: 20170519
  4. METOPROLOL TARTRATE [Concomitant]
     Active Substance: METOPROLOL TARTRATE
     Indication: Hypertension
     Dates: start: 20190627, end: 20210207
  5. AMLODIPINE BESYLATE [Concomitant]
     Active Substance: AMLODIPINE BESYLATE
     Indication: Hypertension
     Dates: start: 20190829, end: 20191106
  6. AMLODIPINE BESYLATE [Concomitant]
     Active Substance: AMLODIPINE BESYLATE
     Dates: start: 20200207, end: 20210121
  7. HYDROCHLOROTHIAZIDE [Concomitant]
     Active Substance: HYDROCHLOROTHIAZIDE
     Indication: Hypertension
     Dates: start: 20200207, end: 20210207
  8. BENAZEPRIL HYDROCHLORIDE [Concomitant]
     Active Substance: BENAZEPRIL HYDROCHLORIDE
     Indication: Hypertension
     Dates: start: 20200419, end: 20210419
  9. LEUCOGEN TABLETS [Concomitant]
     Indication: Platelet count increased
     Dates: start: 20200512, end: 20200706
  10. LEUCOGEN TABLETS [Concomitant]
     Indication: Thrombocytopenia
     Dates: start: 20200713, end: 20210419
  11. URSODIOL [Concomitant]
     Active Substance: URSODIOL
     Indication: Blood bilirubin increased
     Dates: start: 20190627, end: 20191127
  12. VALSARTAN AND HYDROCHLOROTHIAZIDE [Concomitant]
     Active Substance: HYDROCHLOROTHIAZIDE\VALSARTAN
     Indication: Hypertension
     Dates: start: 20191106, end: 20200207
  13. VALSARTAN [Concomitant]
     Active Substance: VALSARTAN
     Indication: Hypertension
     Dates: start: 20200207, end: 20200418
  14. AMMONIUM GLYCYRRHIZATE [Concomitant]
     Active Substance: AMMONIUM GLYCYRRHIZATE
     Dates: start: 20190827, end: 20200108
  15. AMMONIUM GLYCYRRHIZATE [Concomitant]
     Active Substance: AMMONIUM GLYCYRRHIZATE
     Dates: start: 20210415, end: 20210415
  16. NIFEDIPINE [Concomitant]
     Active Substance: NIFEDIPINE
     Indication: Hypertension
     Dosage: NIFEDIPINE GITS
     Dates: start: 20191218, end: 20200207
  17. CYSTEINE\GLYCINE\GLYCYRRHIZIN [Concomitant]
     Active Substance: CYSTEINE\GLYCINE\GLYCYRRHIZIN
     Dates: start: 20210416, end: 20210429
  18. SNAKE VENOM [Concomitant]
     Dosage: HEMAGGLUTINASE INJECTION
     Dates: start: 20210416, end: 20210416
  19. ALBUMIN HUMAN [Concomitant]
     Active Substance: ALBUMIN HUMAN
     Dates: start: 20210419, end: 20210419
  20. CALCIUM CARBONATE\CHOLECALCIFEROL [Concomitant]
     Active Substance: CALCIUM CARBONATE\CHOLECALCIFEROL
     Dates: start: 20210420
  21. LANSOPRAZOLE [Concomitant]
     Active Substance: LANSOPRAZOLE
     Dates: start: 20210420, end: 20210429
  22. UREA [Concomitant]
     Active Substance: UREA
     Dates: start: 20210420
  23. RABEPRAZOLE SODIUM [Concomitant]
     Active Substance: RABEPRAZOLE SODIUM
     Dates: start: 20210430
  24. CALTRATE [Concomitant]
     Active Substance: CALCIUM CARBONATE
     Indication: Mineral supplementation
     Dates: start: 20210516
  25. LEVOFLOXACIN [Concomitant]
     Active Substance: LEVOFLOXACIN
     Dates: start: 20210511
  26. SODIUM CHLORIDE [Concomitant]
     Active Substance: SODIUM CHLORIDE
     Dates: start: 20210511
  27. ESTAZOLAM [Concomitant]
     Active Substance: ESTAZOLAM
     Indication: Insomnia
     Dates: start: 20210512
  28. VITAMIN B6 [Concomitant]
     Active Substance: PYRIDOXINE HYDROCHLORIDE
     Indication: Nutritional supplementation
     Dates: start: 20210514, end: 20210517
  29. VITAMIN C [Concomitant]
     Active Substance: ASCORBIC ACID
     Indication: Nutritional supplementation
     Dates: start: 20210514, end: 20210517
  30. POTASSIUM CHLORIDE [Concomitant]
     Active Substance: POTASSIUM CHLORIDE
     Dosage: SUSTAINED RELEASE TABLET
     Dates: start: 20210514
  31. POTASSIUM CHLORIDE [Concomitant]
     Active Substance: POTASSIUM CHLORIDE
     Dates: start: 20210514, end: 20210517
  32. LEVOFLOXACIN [Concomitant]
     Active Substance: LEVOFLOXACIN
     Indication: Ophthalmic herpes simplex
     Dates: start: 20210512
  33. ACYCLOVIR [Concomitant]
     Active Substance: ACYCLOVIR
     Indication: Ophthalmic herpes simplex
     Dates: start: 20210512
  34. AUREOMYCIN HYDROCHLORIDE [Concomitant]
     Indication: Ophthalmic herpes simplex
     Dosage: EYE OINTMENT
     Dates: start: 20210512
  35. VALACYCLOVIR HYDROCHLORIDE [Concomitant]
     Active Substance: VALACYCLOVIR HYDROCHLORIDE
     Dates: start: 20210512
  36. NEOMYCIN SULFATE [Concomitant]
     Active Substance: NEOMYCIN SULFATE
     Dosage: STERILIZATION SOLUTION
     Dates: start: 20210512

REACTIONS (2)
  - Blood bilirubin increased [Not Recovered/Not Resolved]
  - Proteinuria [Recovering/Resolving]

NARRATIVE: CASE EVENT DATE: 20190826
